FAERS Safety Report 6980844-2 (Version None)
Quarter: 2010Q3

REPORT INFORMATION
  Report Type: 
  Country: None (occurrence: None)
  Receive Date: 20100914
  Receipt Date: 20100908
  Transmission Date: 20110219
  Serious: Yes (Other)
  Sender: FDA-Public Use
  Company Number: JP-ELI_LILLY_AND_COMPANY-JP200903004613

PATIENT
  Age: 72 Year
  Sex: Male

DRUGS (2)
  1. GEMZAR [Suspect]
     Indication: BILE DUCT CANCER
     Dosage: UNK, UNK
     Route: 013
     Dates: start: 20070901
  2. FLUOROURACIL [Concomitant]
     Indication: BILE DUCT CANCER
     Dosage: UNK, UNK
     Route: 013
     Dates: start: 20070901

REACTIONS (6)
  - ALTERED STATE OF CONSCIOUSNESS [None]
  - DISSEMINATED INTRAVASCULAR COAGULATION [None]
  - LIVER ABSCESS [None]
  - LIVER DISORDER [None]
  - SEPSIS [None]
  - SUBDIAPHRAGMATIC ABSCESS [None]
